FAERS Safety Report 5683329-9 (Version None)
Quarter: 2008Q1

REPORT INFORMATION
  Report Type: 
  Country: None (occurrence: None)
  Receive Date: 20080327
  Receipt Date: 20080318
  Transmission Date: 20080703
  Serious: Yes (Other)
  Sender: FDA-Public Use
  Company Number: CA-PFIZER INC-2008025409

PATIENT

DRUGS (1)
  1. LIPITOR [Suspect]

REACTIONS (1)
  - MYELOFIBROSIS [None]
